FAERS Safety Report 13790105 (Version 3)
Quarter: 2017Q3

REPORT INFORMATION
  Report Type: Spontaneous
  Country: GR (occurrence: GR)
  Receive Date: 20170725
  Receipt Date: 20170904
  Transmission Date: 20171127
  Serious: Yes (Hospitalization, Other)
  Sender: FDA-Public Use
  Company Number: GR-JNJFOC-20170714419

PATIENT
  Age: 81 Year
  Sex: Male

DRUGS (4)
  1. RISPERDAL [Suspect]
     Active Substance: RISPERIDONE
     Indication: PSYCHOTIC DISORDER
     Dosage: HALF TABLET EACH IN THE MORNING AND AT NIGHT
     Route: 065
     Dates: start: 201706, end: 201707
  2. RISPERDAL [Suspect]
     Active Substance: RISPERIDONE
     Indication: PSYCHOTIC DISORDER
     Route: 065
     Dates: start: 201707
  3. XARELTO [Concomitant]
     Active Substance: RIVAROXABAN
     Indication: THROMBOSIS PROPHYLAXIS
     Route: 065
  4. CONCOR [Concomitant]
     Active Substance: BISOPROLOL FUMARATE
     Indication: ARRHYTHMIA
     Dosage: 1/4TH TABLET PER DAY
     Route: 065

REACTIONS (9)
  - Anaphylactic shock [Recovered/Resolved]
  - Thrombosis [Recovered/Resolved]
  - Nervous system disorder [Not Recovered/Not Resolved]
  - Infusion site infection [Recovered/Resolved]
  - Abnormal behaviour [Recovered/Resolved]
  - Confusional state [Not Recovered/Not Resolved]
  - Aggression [Recovered/Resolved]
  - Poor quality sleep [Recovered/Resolved]
  - Haematocrit decreased [Not Recovered/Not Resolved]

NARRATIVE: CASE EVENT DATE: 2017
